FAERS Safety Report 6196757-2 (Version None)
Quarter: 2009Q2

REPORT INFORMATION
  Report Type: 
  Country: None (occurrence: None)
  Receive Date: 20090518
  Receipt Date: 20090518
  Transmission Date: 20091009
  Serious: Yes (Other)
  Sender: FDA-Public Use
  Company Number: None

PATIENT
  Age: 67 Year
  Sex: Female
  Weight: 49.8957 kg

DRUGS (1)
  1. NICODERM CQ [Suspect]
     Indication: SMOKING CESSATION THERAPY
     Dosage: ONE PATCH PER DAY 1/DAY TOP
     Route: 061
     Dates: start: 20090502, end: 20090512

REACTIONS (4)
  - APPLICATION SITE BURN [None]
  - CAUSTIC INJURY [None]
  - RASH PAPULAR [None]
  - RASH PRURITIC [None]
